FAERS Safety Report 8008864-X (Version None)
Quarter: 2011Q4

REPORT INFORMATION
  Report Type: 
  Country: None (occurrence: None)
  Receive Date: 20111227
  Receipt Date: 20111216
  Transmission Date: 20120403
  Serious: Yes (Other)
  Sender: FDA-Public Use
  Company Number: CN-ASTRAZENECA-2011SE76072

PATIENT
  Sex: Female

DRUGS (3)
  1. FENTANYL [Suspect]
     Indication: ANAESTHESIA
     Route: 042
  2. PROPOFOL [Suspect]
     Indication: ANAESTHESIA
     Route: 042
  3. DEZOCINE [Suspect]
     Indication: ANAESTHESIA
     Route: 042

REACTIONS (3)
  - VOMITING [None]
  - RESPIRATORY DEPRESSION [None]
  - DYSKINESIA [None]
